FAERS Safety Report 9736110 (Version 2)
Quarter: 2013Q4

REPORT INFORMATION
  Report Type: Report from Study
  Country: GB (occurrence: GB)
  Receive Date: 20131206
  Receipt Date: 20131210
  Transmission Date: 20140711
  Serious: Yes (Life-Threatening, Hospitalization)
  Sender: FDA-Public Use
  Company Number: GB-GLAXOSMITHKLINE-B0950969A

PATIENT
  Sex: Female

DRUGS (2)
  1. LAPATINIB [Suspect]
     Indication: BREAST CANCER
     Dosage: 1250MG PER DAY
     Route: 048
     Dates: start: 20130520
  2. CAPECITABINE [Suspect]
     Indication: BREAST CANCER
     Dosage: 2000MG CYCLIC
     Route: 048
     Dates: start: 20130520

REACTIONS (1)
  - Pulmonary embolism [Not Recovered/Not Resolved]
